FAERS Safety Report 7411950-6 (Version None)
Quarter: 2011Q2

REPORT INFORMATION
  Report Type: 
  Country: None (occurrence: None)
  Receive Date: 20110413
  Receipt Date: 20110404
  Transmission Date: 20111010
  Serious: Yes (Hospitalization)
  Sender: FDA-Public Use
  Company Number: FR-NOVOPROD-326336

PATIENT
  Age: 9 Year
  Sex: Female
  Weight: 21 kg

DRUGS (1)
  1. NORDITROPIN [Suspect]
     Indication: GROWTH RETARDATION
     Dosage: 0,7 MG (6 DAYS ON 7)
     Route: 058
     Dates: start: 20070901, end: 20110203

REACTIONS (1)
  - MYELITIS [None]
